FAERS Safety Report 9248370 (Version 1)
Quarter: 2013Q2

REPORT INFORMATION
  Report Type: Spontaneous
  Country: US (occurrence: None)
  Receive Date: 20130419
  Receipt Date: 20130419
  Transmission Date: 20140414
  Serious: Yes (Hospitalization)
  Sender: FDA-Public Use
  Company Number: None

PATIENT
  Age: 63 Year
  Sex: Male
  Weight: 130.64 kg

DRUGS (2)
  1. RIBASPHERE [Suspect]
     Indication: HEPATITIS C
     Dosage: TAKE 2 TABLETS (400 MG) BY MOUTH EVERY MORNINGAND 2 TABLETS (400 MG) EVERY EVEINIG
     Route: 048
     Dates: start: 20121217, end: 20130315
  2. PEGASYS PROCLICK [Concomitant]

REACTIONS (2)
  - Anaemia [None]
  - Drug hypersensitivity [None]
